FAERS Safety Report 15397134 (Version 1)
Quarter: 2018Q3

REPORT INFORMATION
  Report Type: Other
  Country: US (occurrence: US)
  Receive Date: 20180918
  Receipt Date: 20180918
  Transmission Date: 20181010
  Serious: No
  Sender: FDA-Public Use
  Company Number: US-LEADIANT BIOSCIENCES INC-2018STPI000411

PATIENT
  Sex: Male

DRUGS (2)
  1. MATULANE [Suspect]
     Active Substance: PROCARBAZINE HYDROCHLORIDE
     Dosage: 100 MG, UNK
  2. MATULANE [Suspect]
     Active Substance: PROCARBAZINE HYDROCHLORIDE
     Indication: BRAIN NEOPLASM MALIGNANT
     Dosage: 150 MG, HS FOR 4 DAYS, THEN 100MG HS FOR 3 DAYS
     Route: 048
     Dates: start: 20180516

REACTIONS (2)
  - Night sweats [Not Recovered/Not Resolved]
  - International normalised ratio decreased [Not Recovered/Not Resolved]
